FAERS Safety Report 7355499-8 (Version None)
Quarter: 2011Q1

REPORT INFORMATION
  Report Type: 
  Country: None (occurrence: None)
  Receive Date: 20110316
  Receipt Date: 20110309
  Transmission Date: 20110831
  Serious: Yes (Death)
  Sender: FDA-Public Use
  Company Number: A0900621A

PATIENT
  Age: 81 Year
  Sex: Male

DRUGS (2)
  1. ADVAIR DISKUS 100/50 [Suspect]
     Indication: CHRONIC OBSTRUCTIVE PULMONARY DISEASE
     Route: 055
  2. AVODART [Suspect]
     Dosage: .5MG UNKNOWN
     Route: 048

REACTIONS (3)
  - DEMENTIA [None]
  - PNEUMONIA [None]
  - RIB FRACTURE [None]
